FAERS Safety Report 24563615 (Version 2)
Quarter: 2024Q4

REPORT INFORMATION
  Report Type: Report from Study
  Country: US (occurrence: US)
  Receive Date: 20241030
  Receipt Date: 20241219
  Transmission Date: 20250115
  Serious: Yes (Other)
  Sender: ACADIA PHARMACEUTICALS
  Company Number: US-ACADIA PHARMACEUTICALS INC.-ACA-2024-PIM-006525

PATIENT
  Sex: Female

DRUGS (9)
  1. NUPLAZID [Suspect]
     Active Substance: PIMAVANSERIN TARTRATE
     Indication: Parkinson^s disease
     Dosage: 34 MILLIGRAM
     Route: 048
     Dates: start: 20230308
  2. DICLOFENAC [Concomitant]
     Active Substance: DICLOFENAC
     Dosage: 50 MILLIGRAM
  3. DONEPEZIL [Concomitant]
     Active Substance: DONEPEZIL
     Dosage: 10 MILLIGRAM
  4. OMEPRAZOLE [Concomitant]
     Active Substance: OMEPRAZOLE
     Dosage: 20 MILLIGRAM
  5. POTASSIUM [Concomitant]
     Active Substance: POTASSIUM
     Dosage: 99 MILLIGRAM
  6. SERTRALINE [Concomitant]
     Active Substance: SERTRALINE HYDROCHLORIDE
     Dosage: 50 MILLIGRAM
  7. VITAMIN B-1 [THIAMINE HYDROCHLORIDE] [Concomitant]
     Dosage: 100 MILLIGRAM
  8. VITAMIN D3 [Concomitant]
     Active Substance: CHOLECALCIFEROL
     Dosage: 400 UNIT
  9. VITAMIN B12 [Concomitant]
     Active Substance: CYANOCOBALAMIN
     Dosage: 1000 CR

REACTIONS (6)
  - Hallucination [Unknown]
  - Condition aggravated [Unknown]
  - Oedema peripheral [Unknown]
  - Gait disturbance [Unknown]
  - Confusional state [Unknown]
  - Product dose omission issue [Unknown]
